FAERS Safety Report 9386069 (Version 1)
Quarter: 2013Q3

REPORT INFORMATION
  Report Type: Spontaneous
  Country: TR (occurrence: TR)
  Receive Date: 20130706
  Receipt Date: 20130706
  Transmission Date: 20140515
  Serious: Yes (Hospitalization)
  Sender: FDA-Public Use
  Company Number: TR-B.I. PHARMACEUTICALS,INC./RIDGEFIELD-2013-BI-19144GD

PATIENT
  Age: 78 Year
  Sex: Male

DRUGS (1)
  1. MELOXICAM [Suspect]
     Indication: BACK PAIN
     Dosage: 30 MG

REACTIONS (9)
  - Hyponatraemia [Recovered/Resolved]
  - Inappropriate antidiuretic hormone secretion [Unknown]
  - Headache [Unknown]
  - Nausea [Unknown]
  - Dysarthria [Recovered/Resolved]
  - Altered state of consciousness [Recovered/Resolved]
  - Apathy [Recovered/Resolved]
  - Social problem [Recovered/Resolved]
  - Disorientation [Recovered/Resolved]
